FAERS Safety Report 7374569-1 (Version None)
Quarter: 2011Q1

REPORT INFORMATION
  Report Type: 
  Country: None (occurrence: None)
  Receive Date: 20110325
  Receipt Date: 20100322
  Transmission Date: 20110831
  Serious: No
  Sender: FDA-Public Use
  Company Number: US-MYLANLABS-2010S1005050

PATIENT
  Age: 41 Year
  Sex: Female
  Weight: 67.59 kg

DRUGS (4)
  1. FENTANYL-100 [Suspect]
     Indication: TRIGEMINAL NEURALGIA
     Dosage: CHANGED Q72H
     Route: 062
     Dates: start: 20100315
  2. EFFEXOR [Concomitant]
     Indication: DEPRESSION
  3. PROTONIX [Concomitant]
     Indication: GASTROOESOPHAGEAL REFLUX DISEASE
  4. TOPAMAX [Concomitant]
     Indication: TRIGEMINAL NEURALGIA

REACTIONS (3)
  - MUSCLE SPASMS [None]
  - INSOMNIA [None]
  - DIARRHOEA [None]
